FAERS Safety Report 7308438-X (Version None)
Quarter: 2011Q1

REPORT INFORMATION
  Report Type: 
  Country: None (occurrence: None)
  Receive Date: 20110211
  Receipt Date: 20110203
  Transmission Date: 20110831
  Serious: Yes (Other)
  Sender: FDA-Public Use
  Company Number: LEO-2011-00140

PATIENT
  Age: 72 Year
  Sex: Female

DRUGS (2)
  1. INNOHEP [Suspect]
     Indication: DEEP VEIN THROMBOSIS
     Dosage: (1 IN 1 D),SUBCUTANEOUS
     Route: 058
     Dates: start: 20101213
  2. RIVAROXABAN [Concomitant]

REACTIONS (2)
  - PULMONARY EMBOLISM [None]
  - HEPARIN-INDUCED THROMBOCYTOPENIA [None]
